FAERS Safety Report 6720046-8 (Version None)
Quarter: 2010Q2

REPORT INFORMATION
  Report Type: 
  Country: None (occurrence: None)
  Receive Date: 20100511
  Receipt Date: 20100505
  Transmission Date: 20101027
  Serious: No
  Sender: FDA-Public Use
  Company Number: CHNY2009DE02431

PATIENT
  Age: 42 Year
  Sex: Female

DRUGS (1)
  1. OTRIVEN (NCH) [Suspect]
     Dosage: UNK
     Route: 045
     Dates: start: 20090201, end: 20090301

REACTIONS (1)
  - INTENTIONAL DRUG MISUSE [None]
